FAERS Safety Report 11624645 (Version 1)
Quarter: 2015Q4

REPORT INFORMATION
  Report Type: Spontaneous
  Country: US (occurrence: US)
  Receive Date: 20151013
  Receipt Date: 20151013
  Transmission Date: 20160304
  Serious: Yes (Other)
  Sender: FDA-Public Use
  Company Number: US-SAGENTPRD-2015-US-000028

PATIENT
  Age: 56 Year
  Sex: Male
  Weight: 56.4 kg

DRUGS (4)
  1. RANITIDINE [Concomitant]
     Active Substance: RANITIDINE\RANITIDINE HYDROCHLORIDE
     Route: 042
     Dates: start: 20150825, end: 20150825
  2. GRANISETRON HCL INJECTION, USP 1 MG/ML SINGLE USE VIAL [Suspect]
     Active Substance: GRANISETRON HYDROCHLORIDE
     Route: 042
     Dates: start: 20150825, end: 20150825
  3. DIPHENHYDRAMINE. [Concomitant]
     Active Substance: DIPHENHYDRAMINE
     Route: 042
     Dates: start: 20150825, end: 20150825
  4. DEXAMETHASONE. [Concomitant]
     Active Substance: DEXAMETHASONE
     Route: 042
     Dates: start: 20150825, end: 20150825

REACTIONS (1)
  - Hypersensitivity [Unknown]

NARRATIVE: CASE EVENT DATE: 20150825
